FAERS Safety Report 6245638-4 (Version None)
Quarter: 2009Q2

REPORT INFORMATION
  Report Type: 
  Country: None (occurrence: None)
  Receive Date: 20090625
  Receipt Date: 20081124
  Transmission Date: 20091009
  Serious: No
  Sender: FDA-Public Use
  Company Number: US-ASTRAZENECA-2008UW26277

PATIENT
  Age: 66 Year
  Sex: Male

DRUGS (2)
  1. ZOLADEX [Suspect]
     Indication: SEXUAL DYSFUNCTION
     Route: 058
     Dates: start: 20030101
  2. ZOLADEX [Suspect]
     Indication: EXHIBITIONISM
     Route: 058
     Dates: start: 20030101

REACTIONS (1)
  - AGITATION [None]
